FAERS Safety Report 6187032-0 (Version None)
Quarter: 2009Q2

REPORT INFORMATION
  Report Type: 
  Country: None (occurrence: None)
  Receive Date: 20090512
  Receipt Date: 20090504
  Transmission Date: 20091009
  Serious: Yes (Life-Threatening, Hospitalization)
  Sender: FDA-Public Use
  Company Number: HU-ELI_LILLY_AND_COMPANY-HU200904007158

PATIENT
  Age: 52 Year
  Sex: Female

DRUGS (5)
  1. CYMBALTA [Suspect]
     Indication: MAJOR DEPRESSION
     Dosage: 60 MG, DAILY (1/D)
     Route: 048
     Dates: start: 20090101
  2. XANAX [Concomitant]
     Dosage: 6 MG, DAILY (1/D)
     Route: 048
  3. ANDAXIN [Concomitant]
     Dosage: UNK UNK, 3/D
     Route: 048
  4. BETALOC ZOK [Concomitant]
     Dosage: 50 MG, EACH MORNING
     Route: 048
  5. EDNYT [Concomitant]
     Dosage: UNK, UNKNOWN
     Route: 065

REACTIONS (5)
  - AGORAPHOBIA [None]
  - ALCOHOL ABUSE [None]
  - CARDIAC ARREST [None]
  - PANIC DISORDER [None]
  - SUICIDE ATTEMPT [None]
